FAERS Safety Report 4509581-0 (Version None)
Quarter: 2004Q4

REPORT INFORMATION
  Report Type: 
  Country: None (occurrence: None)
  Receive Date: 20041119
  Receipt Date: 20041013
  Transmission Date: 20050328
  Serious: Yes (Other)
  Sender: FDA-Public Use
  Company Number: 200409302

PATIENT
  Age: 38 Year
  Sex: Female
  Weight: 99.7913 kg

DRUGS (4)
  1. AZELEX [Suspect]
     Indication: ACNE
  2. ADVAIR [Concomitant]
  3. ALLEGRA [Concomitant]
  4. SYNTHROID [Concomitant]

REACTIONS (2)
  - ASTHMA [None]
  - DRUG EFFECT DECREASED [None]
